FAERS Safety Report 7284917-9 (Version None)
Quarter: 2011Q1

REPORT INFORMATION
  Report Type: 
  Country: None (occurrence: None)
  Receive Date: 20110210
  Receipt Date: 20110112
  Transmission Date: 20110831
  Serious: Yes (Other)
  Sender: FDA-Public Use
  Company Number: US-BAYER-201038360NA

PATIENT
  Sex: Female
  Weight: 86.168 kg

DRUGS (2)
  1. YASMIN [Suspect]
     Indication: MENSTRUAL CYCLE MANAGEMENT
     Route: 048
     Dates: start: 20010101, end: 20060101
  2. ALBUTEROL [Concomitant]
     Dosage: UNK
     Dates: start: 20020101, end: 20080101

REACTIONS (5)
  - ATELECTASIS [None]
  - IMPAIRED GASTRIC EMPTYING [None]
  - GALLBLADDER DISORDER [None]
  - BILIARY TRACT DISORDER [None]
  - PAIN [None]
